FAERS Safety Report 9357719 (Version 1)
Quarter: 2013Q2

REPORT INFORMATION
  Report Type: Spontaneous
  Country: US (occurrence: None)
  Receive Date: 20130619
  Receipt Date: 20130619
  Transmission Date: 20140414
  Serious: Yes (Death)
  Sender: FDA-Public Use
  Company Number: None

PATIENT
  Age: 55 Year
  Sex: Male

DRUGS (4)
  1. SELZENTRY [Suspect]
     Indication: HIV INFECTION
     Dosage: 1 TABLET TWICE DAILY ORAL
     Dates: start: 20130112, end: 20130618
  2. NORVIX [Concomitant]
  3. TRUVADA [Concomitant]
  4. APTIVUS [Concomitant]

REACTIONS (1)
  - Death [None]
